FAERS Safety Report 14501811 (Version 1)
Quarter: 2018Q1

REPORT INFORMATION
  Report Type: Spontaneous
  Country: CN (occurrence: CN)
  Receive Date: 20180207
  Receipt Date: 20180207
  Transmission Date: 20180509
  Serious: Yes (Disabling)
  Sender: FDA-Public Use
  Company Number: CN-009507513-1802CHN001212

PATIENT
  Age: 40 Year
  Sex: Male
  Weight: 67.5 kg

DRUGS (2)
  1. SODIUM CHLORIDE. [Suspect]
     Active Substance: SODIUM CHLORIDE
     Dosage: 50 ML, TID (Q8H)
     Route: 042
     Dates: start: 20171206, end: 20171210
  2. TIENAM [Suspect]
     Active Substance: CILASTATIN SODIUM\IMIPENEM
     Indication: PNEUMONITIS
     Dosage: 1 G, TID (Q8H)
     Route: 042
     Dates: start: 20171206, end: 20171210

REACTIONS (1)
  - Hypoacusis [Recovering/Resolving]

NARRATIVE: CASE EVENT DATE: 20171210
